FAERS Safety Report 6543538-3 (Version None)
Quarter: 2010Q1

REPORT INFORMATION
  Report Type: 
  Country: None (occurrence: None)
  Receive Date: 20100120
  Receipt Date: 20100112
  Transmission Date: 20100710
  Serious: Yes (Life-Threatening, Hospitalization, Disabling, Other)
  Sender: FDA-Public Use
  Company Number: JP-ABBOTT-09P-087-0595223-00

PATIENT
  Sex: Male

DRUGS (7)
  1. HUMIRA [Suspect]
     Indication: RHEUMATOID ARTHRITIS
     Route: 058
     Dates: start: 20090805, end: 20090902
  2. METHOTREXATE [Concomitant]
     Indication: RHEUMATOID ARTHRITIS
     Dates: start: 20071201, end: 20090902
  3. PREDNISOLONE [Concomitant]
     Indication: RHEUMATOID ARTHRITIS
     Route: 048
     Dates: start: 20020101
  4. LOXOPORFEN SODIUM HYDRATE [Concomitant]
     Indication: RHEUMATOID ARTHRITIS
     Dates: start: 20020101, end: 20090902
  5. REBAMIPIDE [Concomitant]
     Indication: GASTRITIS PROPHYLAXIS
     Dates: start: 20020101
  6. ISONIAZID [Concomitant]
     Indication: ANTIBIOTIC PROPHYLAXIS
     Dates: start: 20090601, end: 20090902
  7. FOLIC ACID [Concomitant]
     Indication: DRUG USE FOR UNKNOWN INDICATION
     Dates: start: 20071201, end: 20090902

REACTIONS (11)
  - BACTERAEMIA [None]
  - BLOOD CULTURE POSITIVE [None]
  - C-REACTIVE PROTEIN INCREASED [None]
  - DUODENAL ULCER [None]
  - ENTEROBACTER INFECTION [None]
  - HAEMATEMESIS [None]
  - KLEBSIELLA INFECTION [None]
  - LIVER DISORDER [None]
  - PNEUMONIA [None]
  - PNEUMONIA MYCOPLASMAL [None]
  - RESPIRATORY FAILURE [None]
